FAERS Safety Report 5673190-0 (Version None)
Quarter: 2008Q1

REPORT INFORMATION
  Report Type: 
  Country: None (occurrence: None)
  Receive Date: 20080319
  Receipt Date: 20080317
  Transmission Date: 20080703
  Serious: Yes (Life-Threatening, Hospitalization)
  Sender: FDA-Public Use
  Company Number: ES-BRISTOL-MYERS SQUIBB COMPANY-14117808

PATIENT
  Age: 79 Year
  Sex: Female

DRUGS (7)
  1. APROVEL TABS 300 MG [Suspect]
     Indication: HYPERTENSION
     Dosage: 28 TABS
     Route: 048
     Dates: start: 20040101
  2. ALDACTONE [Suspect]
     Indication: HYPERTENSION
     Dosage: 100 MG 20 TABLETS WITH BREAK MARK
     Route: 048
     Dates: start: 20040101
  3. AVANDIA [Suspect]
     Indication: DIABETES MELLITUS
     Dosage: 4 MG 28 FILM-COATED TABLETS. FORM = FILM-COATED TABS
     Route: 048
     Dates: start: 20040101
  4. CARDYL [Suspect]
     Indication: HYPERLIPIDAEMIA
     Dosage: 40 MG FILM-COATED TABLETS. FORM = FILM-COATED TABS
     Route: 048
     Dates: start: 20040101
  5. NOVONORM [Suspect]
     Indication: DIABETES MELLITUS
     Dosage: 2 MG 90 TABLETS. FORM = TABLETS
     Route: 048
     Dates: start: 20040101
  6. DIGOXIN [Suspect]
     Indication: ATRIAL FIBRILLATION
     Dosage: DIGOXINA LIADE 0.25 MG 20 TABELTS. FORM = TABLETS.
     Route: 048
     Dates: start: 20040101
  7. TORSEMIDE [Suspect]
     Indication: HYPERTENSION
     Dosage: 10 MG 30 TABELTS. FORM = TABLETS
     Route: 048
     Dates: start: 20040101

REACTIONS (1)
  - PANCREATITIS ACUTE [None]
